FAERS Safety Report 5167302-5 (Version None)
Quarter: 2006Q4

REPORT INFORMATION
  Report Type: 
  Country: None (occurrence: None)
  Receive Date: 20061130
  Receipt Date: 20061120
  Transmission Date: 20070319
  Serious: No
  Sender: FDA-Public Use
  Company Number: 32412

PATIENT

DRUGS (2)
  1. OCTREOTIDE ACETATE [Suspect]
  2. TERBUTALINE SULFATE [Suspect]

REACTIONS (1)
  - MEDICATION ERROR [None]
